FAERS Safety Report 20380627 (Version 1)
Quarter: 2022Q1

REPORT INFORMATION
  Report Type: Spontaneous
  Country: PR (occurrence: PR)
  Receive Date: 20220127
  Receipt Date: 20220127
  Transmission Date: 20220423
  Serious: No
  Sender: FDA-Public Use
  Company Number: PR-SA-SAC20220123000014

PATIENT
  Sex: Female

DRUGS (1)
  1. KEVZARA [Suspect]
     Active Substance: SARILUMAB
     Indication: Rheumatoid arthritis
     Route: 058
     Dates: start: 20210507

REACTIONS (3)
  - Influenza [Unknown]
  - Mycoplasma infection [Unknown]
  - Shoulder arthroplasty [Unknown]
